FAERS Safety Report 7194162-3 (Version None)
Quarter: 2010Q4

REPORT INFORMATION
  Report Type: 
  Country: None (occurrence: None)
  Receive Date: 20101223
  Receipt Date: 20101012
  Transmission Date: 20110411
  Serious: No
  Sender: FDA-Public Use
  Company Number: US-AMGEN INC.-TCS437127

PATIENT

DRUGS (1)
  1. ENBREL [Suspect]
     Indication: ANKYLOSING SPONDYLITIS
     Dosage: 50 MG, QWK
     Route: 058
     Dates: start: 20100601

REACTIONS (9)
  - DIZZINESS [None]
  - DRUG INEFFECTIVE [None]
  - EPISTAXIS [None]
  - FACIAL BONES FRACTURE [None]
  - FALL [None]
  - INJECTION SITE PAIN [None]
  - OCULAR HYPERAEMIA [None]
  - PAIN [None]
  - WALKING AID USER [None]
